FAERS Safety Report 11640162 (Version 1)
Quarter: 2015Q4

REPORT INFORMATION
  Report Type: Report from Study
  Country: US (occurrence: US)
  Receive Date: 20151019
  Receipt Date: 20151019
  Transmission Date: 20160304
  Serious: Yes (Other)
  Sender: FDA-Public Use
  Company Number: US-BIOGENIDEC-2015BI139109

PATIENT
  Age: 36 Year
  Sex: Male

DRUGS (1)
  1. TYSABRI [Suspect]
     Active Substance: NATALIZUMAB
     Indication: MULTIPLE SCLEROSIS
     Route: 042
     Dates: start: 20091209, end: 20150806

REACTIONS (6)
  - Hypoaesthesia [Not Recovered/Not Resolved]
  - Limb operation [Recovered/Resolved]
  - Generalised tonic-clonic seizure [Recovered/Resolved]
  - Post procedural infection [Unknown]
  - Road traffic accident [Recovered/Resolved]
  - Epilepsy [Not Recovered/Not Resolved]

NARRATIVE: CASE EVENT DATE: 201505
